FAERS Safety Report 10012767 (Version 2)
Quarter: 2014Q2

REPORT INFORMATION
  Report Type: Spontaneous
  Country: IT (occurrence: IT)
  Receive Date: 20140314
  Receipt Date: 20140512
  Transmission Date: 20141212
  Serious: Yes (Hospitalization)
  Sender: FDA-Public Use
  Company Number: PHHY2014IT030592

PATIENT
  Age: 80 Year
  Sex: Female

DRUGS (5)
  1. ACETYLSALICYLIC ACID [Suspect]
     Dosage: 100 MG, QD
     Route: 048
     Dates: start: 20120101, end: 20140125
  2. SOLOSA [Concomitant]
     Dosage: 1.5 MG, UNK
     Route: 048
  3. SERTRALINE [Concomitant]
     Dosage: 1 DF, UNK
     Route: 048
  4. ENALAPRIL [Concomitant]
     Dosage: 5 MG, UNK
     Route: 048
  5. SIMVASTATINE [Concomitant]
     Indication: DYSLIPIDAEMIA
     Dosage: 10 MG, UNK
     Route: 048

REACTIONS (2)
  - Subdural haematoma [Not Recovered/Not Resolved]
  - Mouth haemorrhage [Not Recovered/Not Resolved]
